FAERS Safety Report 13252072 (Version 1)
Quarter: 2017Q1

REPORT INFORMATION
  Report Type: Spontaneous
  Country: US (occurrence: US)
  Receive Date: 20170220
  Receipt Date: 20170220
  Transmission Date: 20170428
  Serious: No
  Sender: FDA-Public Use
  Company Number: US-GLAXOSMITHKLINE-US2017022635

PATIENT
  Age: 58 Year
  Sex: Female

DRUGS (1)
  1. NICODERM CQ [Suspect]
     Active Substance: NICOTINE
     Indication: SMOKING CESSATION THERAPY
     Dosage: 21 MG, UNK
     Route: 062
     Dates: start: 201701, end: 20170207

REACTIONS (8)
  - Abdominal pain upper [Recovered/Resolved]
  - Wrong technique in product usage process [Unknown]
  - Nasopharyngitis [Recovered/Resolved]
  - Overdose [Recovered/Resolved]
  - Sneezing [Recovered/Resolved]
  - Malaise [Recovering/Resolving]
  - Ill-defined disorder [Recovered/Resolved]
  - Cough [Recovered/Resolved]

NARRATIVE: CASE EVENT DATE: 20170211
